FAERS Safety Report 18832479 (Version 1)
Quarter: 2021Q1

REPORT INFORMATION
  Report Type: Spontaneous
  Country: US (occurrence: US)
  Receive Date: 20210203
  Receipt Date: 20210203
  Transmission Date: 20210419
  Serious: No
  Sender: FDA-Public Use
  Company Number: US-ELI_LILLY_AND_COMPANY-US202102001439

PATIENT
  Sex: Male

DRUGS (1)
  1. TRULICITY [Suspect]
     Active Substance: DULAGLUTIDE
     Indication: PRODUCT USED FOR UNKNOWN INDICATION
     Dosage: UNK UNK, WEEKLY (1/W)
     Route: 065
     Dates: start: 202010

REACTIONS (8)
  - Feeling abnormal [Unknown]
  - Decreased appetite [Unknown]
  - Fall [Unknown]
  - Speech disorder [Unknown]
  - Hypersomnia [Unknown]
  - Asthenia [Unknown]
  - Nausea [Unknown]
  - Dysstasia [Unknown]
